FAERS Safety Report 8923908 (Version 1)
Quarter: 2012Q4

REPORT INFORMATION
  Report Type: Spontaneous
  Country: US (occurrence: None)
  Receive Date: 20121121
  Receipt Date: 20121121
  Transmission Date: 20130627
  Serious: No
  Sender: FDA-Public Use
  Company Number: None

PATIENT
  Age: 25 Year
  Sex: Male
  Weight: 104.33 kg

DRUGS (1)
  1. RISPERIDONE [Suspect]

REACTIONS (2)
  - Joint stiffness [None]
  - Tongue disorder [None]
